FAERS Safety Report 17205691 (Version 1)
Quarter: 2019Q4

REPORT INFORMATION
  Report Type: Report from Study
  Country: IT (occurrence: IT)
  Receive Date: 20191227
  Receipt Date: 20191227
  Transmission Date: 20200122
  Serious: Yes (Other)
  Sender: FDA-Public Use
  Company Number: IT-EMD SERONO-9136430

PATIENT
  Age: 33 Year
  Sex: Female

DRUGS (2)
  1. REBIF [Suspect]
     Active Substance: INTERFERON BETA-1A
     Route: 058
     Dates: start: 201905
  2. REBIF [Suspect]
     Active Substance: INTERFERON BETA-1A
     Indication: PRODUCT USED FOR UNKNOWN INDICATION
     Route: 058
     Dates: start: 20121221, end: 20180720

REACTIONS (3)
  - Maternal exposure during pregnancy [Recovered/Resolved]
  - Live birth [Recovered/Resolved]
  - Brain injury [Unknown]

NARRATIVE: CASE EVENT DATE: 2018
